FAERS Safety Report 6368158-5 (Version None)
Quarter: 2009Q3

REPORT INFORMATION
  Report Type: 
  Country: None (occurrence: None)
  Receive Date: 20090915
  Receipt Date: 20090915
  Transmission Date: 20100115
  Serious: No
  Sender: FDA-Public Use
  Company Number: None

PATIENT
  Age: 54 Year
  Sex: Male

DRUGS (1)
  1. VARENICLINE [Suspect]
     Dosage: 0.5 MG BID
     Dates: start: 20090818, end: 20090910

REACTIONS (1)
  - SUICIDAL IDEATION [None]
